FAERS Safety Report 16012031 (Version 1)
Quarter: 2019Q1

REPORT INFORMATION
  Report Type: Spontaneous
  Country: ES (occurrence: ES)
  Receive Date: 20190227
  Receipt Date: 20190227
  Transmission Date: 20190418
  Serious: Yes (Hospitalization)
  Sender: FDA-Public Use
  Company Number: PHHY2019ES042404

PATIENT
  Age: 28 Year
  Sex: Male

DRUGS (3)
  1. CEFTRIAXONE. [Suspect]
     Active Substance: CEFTRIAXONE
     Indication: EVIDENCE BASED TREATMENT
     Route: 065
  2. AMPICILLIN [Suspect]
     Active Substance: AMPICILLIN
     Indication: EVIDENCE BASED TREATMENT
     Route: 065
  3. CLOXACILLIN [Suspect]
     Active Substance: CLOXACILLIN
     Indication: EVIDENCE BASED TREATMENT
     Route: 065

REACTIONS (2)
  - Cardiac failure [Unknown]
  - Pyrexia [Unknown]
